FAERS Safety Report 14678262 (Version 2)
Quarter: 2018Q2

REPORT INFORMATION
  Report Type: Spontaneous
  Country: DE (occurrence: DE)
  Receive Date: 20180326
  Receipt Date: 20180619
  Transmission Date: 20180711
  Serious: Yes (Hospitalization, Other)
  Sender: FDA-Public Use
  Company Number: DE-ABBVIE-18P-062-2295784-00

PATIENT
  Age: 64 Year
  Sex: Female
  Weight: 61 kg

DRUGS (2)
  1. ERGENYL CHRONO [Suspect]
     Active Substance: VALPROIC ACID
     Indication: EPILEPSY
     Route: 048
     Dates: start: 2003
  2. ERGENYL CHRONO [Suspect]
     Active Substance: VALPROIC ACID
     Dosage: 1 DOSAGE FORM
     Route: 048
     Dates: start: 201711

REACTIONS (8)
  - Product quality issue [Unknown]
  - Therapeutic response decreased [Unknown]
  - Drug ineffective [Unknown]
  - Circulatory collapse [Unknown]
  - Product use complaint [Unknown]
  - Muscle spasms [Unknown]
  - Circulatory collapse [Unknown]
  - Seizure [Unknown]

NARRATIVE: CASE EVENT DATE: 20171118
